FAERS Safety Report 11867005 (Version 2)
Quarter: 2016Q1

REPORT INFORMATION
  Report Type: Report from Study
  Country: PL (occurrence: PL)
  Receive Date: 20151224
  Receipt Date: 20160226
  Transmission Date: 20160526
  Serious: No
  Sender: FDA-Public Use
  Company Number: PL-ROCHE-1244322

PATIENT
  Age: 52 Year
  Sex: Female
  Weight: 73 kg

DRUGS (19)
  1. ADIPINE (POLAND) [Concomitant]
     Indication: HYPERTENSION
     Dosage: EVERY DAY
     Route: 048
     Dates: start: 2011
  2. ARAVA [Concomitant]
     Active Substance: LEFLUNOMIDE
     Indication: RHEUMATOID ARTHRITIS
     Dosage: EVERY DAY
     Route: 048
     Dates: start: 2006, end: 200812
  3. DICLORATIO UNO [Concomitant]
     Dosage: EVERY DAY
     Route: 048
     Dates: start: 20130606, end: 20130617
  4. CLEXANE [Concomitant]
     Active Substance: ENOXAPARIN SODIUM
     Dosage: EVRY DAY
     Route: 058
     Dates: start: 20130606, end: 20130627
  5. VESSEL DUE [Concomitant]
     Dosage: EVERY DAY
     Route: 048
     Dates: start: 20130606
  6. METHOTREXATE [Concomitant]
     Active Substance: METHOTREXATE
     Route: 048
     Dates: start: 20130701
  7. SULFASALAZINE DELAYED-RELEASE [Concomitant]
     Active Substance: SULFASALAZINE
     Indication: RHEUMATOID ARTHRITIS
  8. METHYLPREDNISOLONE. [Concomitant]
     Active Substance: METHYLPREDNISOLONE
     Indication: RHEUMATOID ARTHRITIS
     Dosage: EVERY DAY
     Route: 048
     Dates: start: 2004
  9. VIGANTOLETTEN [Concomitant]
     Active Substance: CHOLECALCIFEROL
     Dosage: EVERY DAY
     Route: 048
     Dates: start: 20130424
  10. DICLODUO [Concomitant]
     Active Substance: DICLOFENAC SODIUM
     Indication: RHEUMATOID ARTHRITIS
     Dosage: PRN
     Route: 048
     Dates: start: 20130424
  11. CALPEROS [Concomitant]
     Active Substance: CALCIUM CARBONATE
     Dosage: EVERY DAY
     Route: 048
     Dates: start: 20130424
  12. ACIDUM FOLICUM [Concomitant]
     Active Substance: FOLIC ACID
     Route: 048
     Dates: start: 1999
  13. METHOTREXATE [Concomitant]
     Active Substance: METHOTREXATE
     Route: 048
     Dates: start: 1999, end: 20130701
  14. TOCILIZUMAB [Suspect]
     Active Substance: TOCILIZUMAB
     Indication: RHEUMATOID ARTHRITIS
     Dosage: DOSE PRIOR TO EVENT 29/MAY/2013 AT 8 MG/KG
     Route: 042
     Dates: start: 20130529
  15. POLPRAZOL [Concomitant]
     Active Substance: OMEPRAZOLE
     Dosage: PRN
     Route: 048
     Dates: start: 20130424
  16. OSPAMOX [Concomitant]
     Active Substance: AMOXICILLIN
     Route: 048
     Dates: start: 20140917, end: 20140923
  17. DURACEF (POLAND) [Concomitant]
     Dosage: EVERY DAY
     Route: 048
     Dates: start: 20130606, end: 20130617
  18. CLEXANE [Concomitant]
     Active Substance: ENOXAPARIN SODIUM
     Route: 065
     Dates: start: 20130628, end: 20130720
  19. FRAXODI [Concomitant]
     Active Substance: NADROPARIN CALCIUM
     Route: 058
     Dates: start: 20150923

REACTIONS (1)
  - Hepatotoxicity [Recovered/Resolved]

NARRATIVE: CASE EVENT DATE: 20130626
